FAERS Safety Report 8287356-7 (Version None)
Quarter: 2012Q2

REPORT INFORMATION
  Report Type: 
  Country: None (occurrence: None)
  Receive Date: 20120416
  Receipt Date: 20120411
  Transmission Date: 20120825
  Serious: Yes (Other)
  Sender: FDA-Public Use
  Company Number: IT-SANOFI-AVENTIS-2012SA025134

PATIENT
  Age: 69 Year
  Sex: Female

DRUGS (2)
  1. ZOLPIDEM TARTRATE [Suspect]
     Indication: INSOMNIA
     Route: 048
     Dates: start: 20120105, end: 20120405
  2. DELORAZEPAM [Concomitant]
     Dosage: 1 MG/ML.
     Route: 048

REACTIONS (4)
  - DIZZINESS [None]
  - BRAIN INJURY [None]
  - FALL [None]
  - CONTUSION [None]
